FAERS Safety Report 6173260-7 (Version None)
Quarter: 2009Q2

REPORT INFORMATION
  Report Type: 
  Country: None (occurrence: None)
  Receive Date: 20090428
  Receipt Date: 20090410
  Transmission Date: 20091009
  Serious: Yes (Hospitalization)
  Sender: FDA-Public Use
  Company Number: STI-2009-00897

PATIENT
  Age: 32 Year
  Sex: Female

DRUGS (2)
  1. DUAC [Suspect]
     Indication: ACNE
     Dosage: ONCE DAILY, TOPICAL
     Route: 061
     Dates: start: 20090324, end: 20090326
  2. SKINOREN (AZELAIC ACID) [Suspect]
     Dosage: ONCE DAILY
     Dates: start: 20090324, end: 20090326

REACTIONS (1)
  - DERMATITIS CONTACT [None]
